FAERS Safety Report 5738245-0 (Version None)
Quarter: 2008Q2

REPORT INFORMATION
  Report Type: 
  Country: None (occurrence: None)
  Receive Date: 20080514
  Receipt Date: 20080507
  Transmission Date: 20081010
  Serious: Yes (Hospitalization)
  Sender: FDA-Public Use
  Company Number: AU-PFIZER INC-2008033708

PATIENT
  Sex: Male
  Weight: 87 kg

DRUGS (10)
  1. SU-011,248 [Suspect]
     Indication: RENAL CELL CARCINOMA
     Route: 048
  2. PROCHLORPERAZINE [Concomitant]
     Route: 048
  3. MYLANTA [Concomitant]
     Route: 048
  4. NEXIUM [Concomitant]
     Route: 048
  5. PANTOPRAZOLE SODIUM [Concomitant]
     Route: 048
  6. FENTANYL CITRATE [Concomitant]
     Route: 061
  7. CELEBREX [Concomitant]
     Route: 048
  8. LOPERAMIDE HCL [Concomitant]
     Route: 048
  9. MORPHINE MIXTURE [Concomitant]
     Route: 048
  10. LEVOTHYROXINE SODIUM [Concomitant]
     Dosage: DAILY DOSE:125MCG
     Route: 048

REACTIONS (1)
  - TRANSIENT ISCHAEMIC ATTACK [None]
